FAERS Safety Report 8199209-3 (Version None)
Quarter: 2012Q1

REPORT INFORMATION
  Report Type: 
  Country: None (occurrence: None)
  Receive Date: 20120309
  Receipt Date: 20120302
  Transmission Date: 20120608
  Serious: Yes (Hospitalization)
  Sender: FDA-Public Use
  Company Number: PL-JNJFOC-20100306036

PATIENT
  Sex: Female
  Weight: 53 kg

DRUGS (10)
  1. METHYLPREDNISOLONE [Concomitant]
     Route: 048
     Dates: start: 20060815
  2. GOLIMUMAB [Suspect]
     Indication: RHEUMATOID ARTHRITIS
     Route: 058
     Dates: start: 20091015
  3. GOLIMUMAB [Suspect]
     Route: 058
     Dates: start: 20070405
  4. METHOTREXATE [Suspect]
     Indication: RHEUMATOID ARTHRITIS
     Route: 048
     Dates: start: 20060922, end: 20061013
  5. GOLIMUMAB [Suspect]
     Route: 058
     Dates: start: 20071115
  6. ACIDUM FOLICUM [Concomitant]
     Route: 048
     Dates: start: 20021010
  7. METHOTREXATE [Concomitant]
     Dates: start: 20080630
  8. PLACEBO [Suspect]
     Indication: RHEUMATOID ARTHRITIS
     Route: 058
     Dates: start: 20061019, end: 20070308
  9. METHOTREXATE [Suspect]
     Route: 048
     Dates: start: 20061020, end: 20080103
  10. DICLOFENAC SODIUM [Concomitant]
     Route: 048
     Dates: start: 20060719

REACTIONS (1)
  - DRUG ERUPTION [None]
